FAERS Safety Report 11709641 (Version 2)
Quarter: 2015Q4

REPORT INFORMATION
  Report Type: Spontaneous
  Country: US (occurrence: US)
  Receive Date: 20151104
  Receipt Date: 20151110
  Transmission Date: 20160304
  Serious: No
  Sender: FDA-Public Use
  Company Number: US-ELI_LILLY_AND_COMPANY-US201108007377

PATIENT
  Sex: Female

DRUGS (1)
  1. FORTEO [Suspect]
     Active Substance: TERIPARATIDE
     Indication: OSTEOPOROSIS
     Dosage: 20 UG, QD
     Route: 058
     Dates: end: 20110821

REACTIONS (9)
  - Nausea [Recovered/Resolved]
  - Eye pain [Recovering/Resolving]
  - Abdominal discomfort [Unknown]
  - Dyspepsia [Recovered/Resolved]
  - Headache [Recovering/Resolving]
  - Eye swelling [Recovering/Resolving]
  - Malaise [Unknown]
  - Feeling abnormal [Unknown]
  - Constipation [Unknown]
